FAERS Safety Report 4911925-2 (Version None)
Quarter: 2006Q1

REPORT INFORMATION
  Report Type: 
  Country: None (occurrence: None)
  Receive Date: 20060213
  Receipt Date: 20060213
  Transmission Date: 20060701
  Serious: Yes (Life-Threatening)
  Sender: FDA-Public Use
  Company Number: None

PATIENT
  Age: 53 Year
  Sex: Female
  Weight: 76.2043 kg

DRUGS (2)
  1. BETASERON [Suspect]
     Indication: ASTHENIA
     Dates: start: 20040406, end: 20040531
  2. BETASERON [Suspect]
     Indication: ASTHENIA
     Dates: start: 20040531, end: 20040531

REACTIONS (3)
  - FEELING ABNORMAL [None]
  - PARALYSIS [None]
  - SWELLING [None]
